FAERS Safety Report 15759982 (Version 2)
Quarter: 2018Q4

REPORT INFORMATION
  Report Type: Spontaneous
  Country: CH (occurrence: CH)
  Receive Date: 20181226
  Receipt Date: 20181231
  Transmission Date: 20190205
  Serious: Yes (Hospitalization, Other)
  Sender: FDA-Public Use
  Company Number: CH-ASTRAZENECA-2018SF68210

PATIENT
  Age: 22103 Day
  Sex: Male
  Weight: 100.3 kg

DRUGS (14)
  1. ZOLPIDEM [Concomitant]
     Active Substance: ZOLPIDEM\ZOLPIDEM TARTRATE
     Route: 048
     Dates: start: 20181003, end: 20181106
  2. TARGOCID [Concomitant]
     Active Substance: TEICOPLANIN
     Route: 042
     Dates: start: 20181025, end: 20181029
  3. MOTILIUM [Concomitant]
     Active Substance: DOMPERIDONE
     Route: 048
     Dates: start: 20181026, end: 20181102
  4. CYCLOPHOSPHAMIDE. [Concomitant]
     Active Substance: CYCLOPHOSPHAMIDE
     Dates: start: 20180717
  5. ALKERAN [Concomitant]
     Active Substance: MELPHALAN
     Dates: start: 20181005
  6. DEXAMETHASONE. [Concomitant]
     Active Substance: DEXAMETHASONE
     Dosage: 10.0MG UNKNOWN
     Dates: start: 20180828
  7. BORTEZOMIB. [Concomitant]
     Active Substance: BORTEZOMIB
  8. VALTREX [Concomitant]
     Active Substance: VALACYCLOVIR HYDROCHLORIDE
     Route: 048
     Dates: start: 20181003, end: 20181106
  9. TARGOCID [Concomitant]
     Active Substance: TEICOPLANIN
     Dates: start: 20181023, end: 20181024
  10. ESOMEPRAZOLE MAGNESIUM. [Suspect]
     Active Substance: ESOMEPRAZOLE MAGNESIUM
     Indication: AMYLOIDOSIS
     Dosage: 40.0MG UNKNOWN
     Route: 048
     Dates: end: 20181126
  11. ESOMEPRAZOLE MAGNESIUM. [Suspect]
     Active Substance: ESOMEPRAZOLE MAGNESIUM
     Indication: AMYLOIDOSIS
     Dosage: 40.0MG UNKNOWN
     Route: 048
     Dates: end: 20180412
  12. MERONEM [Concomitant]
     Active Substance: MEROPENEM
     Dates: start: 20181022, end: 20181028
  13. BACTRIM [Concomitant]
     Active Substance: SULFAMETHOXAZOLE\TRIMETHOPRIM
     Dosage: MONTAG, MITTWOCH, FREITAG
     Route: 048
     Dates: start: 20181002, end: 20181019
  14. BACTRIM [Concomitant]
     Active Substance: SULFAMETHOXAZOLE\TRIMETHOPRIM
     Route: 048
     Dates: start: 20181024, end: 20181105

REACTIONS (8)
  - Hypocalcaemia [Recovering/Resolving]
  - Tremor [Recovering/Resolving]
  - Asthenia [Recovering/Resolving]
  - Hypomagnesaemia [Recovering/Resolving]
  - Gait disturbance [Recovering/Resolving]
  - Paraesthesia [Recovering/Resolving]
  - Hypophosphataemia [Recovering/Resolving]
  - Hypokalaemia [Recovering/Resolving]

NARRATIVE: CASE EVENT DATE: 20181126
